FAERS Safety Report 21031434 (Version 5)
Quarter: 2023Q1

REPORT INFORMATION
  Report Type: Report from Study
  Country: FR (occurrence: None)
  Receive Date: 20220701
  Receipt Date: 20230316
  Transmission Date: 20230418
  Serious: Yes (Hospitalization, Other)
  Sender: FDA-Public Use
  Company Number: FR-ROCHE-3124396

PATIENT
  Age: 60 Year
  Sex: Male
  Weight: 58 kg

DRUGS (4)
  1. ATEZOLIZUMAB [Suspect]
     Active Substance: ATEZOLIZUMAB
     Indication: Neoplasm
     Dosage: LAST DOSE ADMINISTERED ON 16/JUN/2022?ON DAY 1 EVERY 3 WEEKS.
     Route: 041
     Dates: start: 20220616
  2. ATEZOLIZUMAB [Suspect]
     Active Substance: ATEZOLIZUMAB
     Indication: Transitional cell carcinoma
  3. INVESTIGATIONAL PRODUCT [Suspect]
     Active Substance: INVESTIGATIONAL PRODUCT
     Indication: Neoplasm
     Dosage: LAST DOSE ADMINISTERED ON 16/JUN/2022, 0.75 MG/M2?ON DAY 1 EVERY 3 WEEKS.
     Route: 042
     Dates: start: 20220616
  4. INVESTIGATIONAL PRODUCT [Suspect]
     Active Substance: INVESTIGATIONAL PRODUCT
     Indication: Transitional cell carcinoma

REACTIONS (2)
  - Fatigue [Not Recovered/Not Resolved]
  - Infusion related reaction [Unknown]

NARRATIVE: CASE EVENT DATE: 20220817
